FAERS Safety Report 10164949 (Version 2)
Quarter: 2014Q2

REPORT INFORMATION
  Report Type: Spontaneous
  Country: US (occurrence: US)
  Receive Date: 20140510
  Receipt Date: 20140510
  Transmission Date: 20141212
  Serious: No
  Sender: FDA-Public Use
  Company Number: US-BRISTOL-MYERS SQUIBB COMPANY-19610013

PATIENT
  Sex: Female

DRUGS (3)
  1. BYETTA [Suspect]
  2. VITAMIN D [Concomitant]
  3. VITAMIN B12 [Concomitant]

REACTIONS (4)
  - Nephrolithiasis [Unknown]
  - Blood glucose decreased [Unknown]
  - Chromaturia [Unknown]
  - Dysuria [Unknown]
